FAERS Safety Report 25529190 (Version 1)
Quarter: 2025Q3

REPORT INFORMATION
  Report Type: Spontaneous
  Country: EU (occurrence: EU)
  Receive Date: 20250708
  Receipt Date: 20250708
  Transmission Date: 20251021
  Serious: Yes (Hospitalization, Other)
  Sender: SANDOZ
  Company Number: EU-DialogSolutions-SAAVPROD-PI787436-C1

PATIENT
  Age: 28 Year
  Sex: Female

DRUGS (12)
  1. LEFLUNOMIDE [Suspect]
     Active Substance: LEFLUNOMIDE
     Dosage: 10 MG, QD, REDUCTION
     Route: 065
     Dates: start: 200401
  2. LEFLUNOMIDE [Suspect]
     Active Substance: LEFLUNOMIDE
     Indication: Rheumatoid arthritis
     Dosage: 20 MG, QD
     Route: 065
     Dates: start: 200011
  3. METHOTREXATE [Suspect]
     Active Substance: METHOTREXATE
     Indication: Rheumatoid arthritis
     Dosage: 10 MG, QD
     Route: 065
     Dates: start: 200003
  4. METHOTREXATE [Suspect]
     Active Substance: METHOTREXATE
     Dosage: 20 MG, QD
     Route: 065
     Dates: start: 2000
  5. METHYLPREDNISOLONE [Suspect]
     Active Substance: METHYLPREDNISOLONE
     Route: 042
     Dates: start: 200003, end: 2004
  6. METHYLPREDNISOLONE [Suspect]
     Active Substance: METHYLPREDNISOLONE
     Indication: Rheumatoid arthritis
     Route: 065
     Dates: start: 199703, end: 1997
  7. PREDNISONE [Suspect]
     Active Substance: PREDNISONE
     Indication: Rheumatoid arthritis
     Dosage: 10 MG, QD
     Route: 065
     Dates: start: 1996
  8. PREDNISONE [Suspect]
     Active Substance: PREDNISONE
     Dosage: 20 MG, QD
     Route: 065
     Dates: start: 199703
  9. PREDNISONE [Suspect]
     Active Substance: PREDNISONE
     Dosage: 30 MG, QD, INTRAVENOUS BOLUS
     Route: 042
     Dates: start: 200003, end: 2004
  10. PREDNISONE [Suspect]
     Active Substance: PREDNISONE
     Dosage: 30 MG, QD, SIGNIFICANT INCREASE IN  CORTICOSTEROIDS
     Route: 065
  11. SULFASALAZINE [Suspect]
     Active Substance: SULFASALAZINE
     Indication: Rheumatoid arthritis
     Dosage: 3 G, QD
     Route: 065
     Dates: start: 1996, end: 1996
  12. SULFASALAZINE [Suspect]
     Active Substance: SULFASALAZINE
     Dosage: 3 G, QD
     Route: 065

REACTIONS (6)
  - Drug ineffective [Unknown]
  - Pneumonia aspiration [Unknown]
  - Adrenal insufficiency [Unknown]
  - Diabetic neuropathy [Unknown]
  - Infection [Unknown]
  - Staphylococcal infection [Unknown]
